FAERS Safety Report 21277594 (Version 1)
Quarter: 2022Q3

REPORT INFORMATION
  Report Type: Spontaneous
  Country: US (occurrence: US)
  Receive Date: 20220831
  Receipt Date: 20220831
  Transmission Date: 20221026
  Serious: No
  Sender: FDA-Public Use
  Company Number: US-ABBVIE-22K-163-4334369-00

PATIENT
  Age: 38 Year
  Sex: Male
  Weight: 54.480 kg

DRUGS (5)
  1. HUMIRA [Suspect]
     Active Substance: ADALIMUMAB
     Indication: Crohn^s disease
     Route: 058
     Dates: start: 2017
  2. MESALAMINE [Concomitant]
     Active Substance: MESALAMINE
     Indication: Crohn^s disease
  3. PFIZER-BIONTECH COVID-19 VACCINE [Concomitant]
     Active Substance: TOZINAMERAN
     Indication: COVID-19 immunisation
     Route: 030
     Dates: start: 20210303, end: 20210303
  4. PFIZER-BIONTECH COVID-19 VACCINE [Concomitant]
     Active Substance: TOZINAMERAN
     Route: 030
     Dates: start: 20210324, end: 20210324
  5. PFIZER-BIONTECH COVID-19 VACCINE [Concomitant]
     Active Substance: TOZINAMERAN
     Route: 030
     Dates: start: 20211021, end: 20211021

REACTIONS (5)
  - Incorrect dose administered [Recovered/Resolved]
  - Device issue [Recovered/Resolved]
  - Incorrect dose administered [Recovered/Resolved]
  - Injection site haemorrhage [Recovered/Resolved]
  - Herpes zoster [Recovered/Resolved]

NARRATIVE: CASE EVENT DATE: 20171201
